FAERS Safety Report 17688212 (Version 1)
Quarter: 2020Q2

REPORT INFORMATION
  Report Type: Spontaneous
  Country: US (occurrence: US)
  Receive Date: 20200420
  Receipt Date: 20200420
  Transmission Date: 20200714
  Serious: Yes (Disabling, Other)
  Sender: FDA-Public Use
  Company Number: None

PATIENT
  Age: 46 Year
  Sex: Female
  Weight: 65.25 kg

DRUGS (2)
  1. ROXICODONE [Suspect]
     Active Substance: OXYCODONE HYDROCHLORIDE
     Indication: ARTHRITIS
     Dosage: ?          QUANTITY:180 TABLET(S);?
     Route: 048
  2. ROXICODONE [Suspect]
     Active Substance: OXYCODONE HYDROCHLORIDE
     Indication: ARTHROPATHY
     Dosage: ?          QUANTITY:180 TABLET(S);?
     Route: 048

REACTIONS (13)
  - Vomiting [None]
  - Mobility decreased [None]
  - Product substitution issue [None]
  - Product colour issue [None]
  - Inadequate analgesia [None]
  - Product physical issue [None]
  - Product formulation issue [None]
  - Feeling abnormal [None]
  - Therapeutic product effect incomplete [None]
  - Product counterfeit [None]
  - Drug ineffective [None]
  - Product shape issue [None]
  - Product design issue [None]

NARRATIVE: CASE EVENT DATE: 20200331
